FAERS Safety Report 10102669 (Version 2)
Quarter: 2014Q2

REPORT INFORMATION
  Report Type: Other
  Country: US (occurrence: US)
  Receive Date: 20140424
  Receipt Date: 20140610
  Transmission Date: 20141212
  Serious: Yes (Death, Hospitalization, Other)
  Sender: FDA-Public Use
  Company Number: US-GSKPPD-2014GSK000321

PATIENT
  Age: 61 Year
  Sex: Male

DRUGS (23)
  1. AVANDIA [Suspect]
     Indication: DIABETES MELLITUS
     Route: 048
     Dates: start: 2001, end: 2004
  2. PLAVIX [Concomitant]
     Route: 048
  3. ASPIRIN [Concomitant]
     Route: 048
  4. DIGITEK [Concomitant]
     Route: 048
  5. DIGITEK [Concomitant]
     Route: 048
  6. COREG [Concomitant]
     Route: 048
  7. COREG [Concomitant]
     Route: 048
  8. ZOCOR [Concomitant]
     Route: 048
  9. ZOCOR [Concomitant]
     Route: 048
  10. ZETIA [Concomitant]
     Route: 048
  11. ZETIA [Concomitant]
     Route: 048
  12. FLOMAX [Concomitant]
     Route: 048
  13. FLOMAX [Concomitant]
     Route: 048
  14. FLOMAX [Concomitant]
     Route: 048
  15. NORVASC [Concomitant]
     Route: 048
  16. NORVASC [Concomitant]
     Route: 048
  17. NORVASC [Concomitant]
     Route: 048
  18. BENAZEPRIL [Concomitant]
     Route: 048
  19. BENAZEPRIL [Concomitant]
     Route: 048
  20. BENAZEPRIL [Concomitant]
     Route: 048
  21. PLENDIL [Concomitant]
     Route: 048
  22. PLENDIL [Concomitant]
     Route: 048
  23. PLENDIL [Concomitant]
     Route: 048

REACTIONS (2)
  - Myocardial infarction [Fatal]
  - Cardiac failure congestive [Recovered/Resolved]
